FAERS Safety Report 9352292 (Version 1)
Quarter: 2013Q2

REPORT INFORMATION
  Report Type: Spontaneous
  Country: NL (occurrence: NL)
  Receive Date: 20130617
  Receipt Date: 20130617
  Transmission Date: 20140414
  Serious: Yes (Disabling)
  Sender: FDA-Public Use
  Company Number: NL-009507513-1306NLD005863

PATIENT
  Sex: Male

DRUGS (6)
  1. SINEMET-125 [Suspect]
     Indication: PARKINSON^S DISEASE
     Dosage: 3DD 1 TAB
     Route: 048
     Dates: start: 200911
  2. SINEMET-125 [Suspect]
     Dosage: NEW TABLET
     Dates: start: 201304
  3. SINEMET 62,5 [Suspect]
     Indication: PARKINSON^S DISEASE
     Dosage: 3DD 1 TAB
     Route: 048
     Dates: start: 200911
  4. SINEMET 62,5 [Suspect]
     Dosage: NEW TABLET
     Dates: start: 201304
  5. SINEMET CR 125 [Suspect]
     Indication: PARKINSON^S DISEASE
     Dosage: 1DD 1 TAB
     Route: 048
     Dates: start: 200911
  6. SINEMET CR 125 [Suspect]
     Dosage: NEW TABLET
     Dates: start: 201304

REACTIONS (7)
  - Activities of daily living impaired [Unknown]
  - Depression [Unknown]
  - Anxiety [Unknown]
  - Palpitations [Unknown]
  - Constipation [Unknown]
  - Drug ineffective [Unknown]
  - Parkinson^s disease [Unknown]
